FAERS Safety Report 6653705-6 (Version None)
Quarter: 2010Q1

REPORT INFORMATION
  Report Type: 
  Country: None (occurrence: None)
  Receive Date: 20100326
  Receipt Date: 20090424
  Transmission Date: 20100710
  Serious: Yes (Death, Hospitalization)
  Sender: FDA-Public Use
  Company Number: AU-PFIZER INC-2008065811

PATIENT
  Age: 63 Year
  Sex: Male
  Weight: 46 kg

DRUGS (15)
  1. IRINOTECAN HCL [Suspect]
     Indication: COLORECTAL CANCER
     Dosage: 220 MG, UNK
     Route: 042
     Dates: start: 20080506, end: 20080714
  2. BLINDED *NO SUBJECT DRUG [Suspect]
     Indication: COLORECTAL CANCER
     Dosage: 37.5 MG, 1X/DAY
     Route: 048
     Dates: start: 20080506, end: 20080722
  3. BLINDED *PLACEBO [Suspect]
     Indication: COLORECTAL CANCER
     Dosage: 37.5 MG, 1X/DAY
     Route: 048
     Dates: start: 20080506, end: 20080722
  4. BLINDED SUNITINIB MALATE [Suspect]
     Indication: COLORECTAL CANCER
     Dosage: 37.5 MG, 1X/DAY
     Route: 048
     Dates: start: 20080506, end: 20080722
  5. *FLUOROURACIL [Suspect]
     Indication: COLORECTAL CANCER
     Dosage: 500 MG, UNK
     Route: 040
     Dates: start: 20080507, end: 20080716
  6. *FLUOROURACIL [Suspect]
     Dosage: 2950 MG, UNK
     Route: 042
     Dates: start: 20080507, end: 20080716
  7. *CALCIUM FOLINATE [Suspect]
     Indication: COLORECTAL CANCER
     Dosage: 240 MG, UNK
     Route: 042
     Dates: start: 20080506, end: 20080714
  8. PARACETAMOL [Concomitant]
     Dates: start: 20080201
  9. MOVICOL [Concomitant]
     Dates: start: 20080505
  10. TEMAZE [Concomitant]
     Dates: start: 20080508
  11. GASTRO-STOP [Concomitant]
     Dates: start: 20080511
  12. MYLANTA [Concomitant]
     Dates: start: 20080514
  13. ZANTAC [Concomitant]
     Dates: start: 20080514
  14. DOMPERIDONE [Concomitant]
     Dates: start: 20080614
  15. SOMAC [Concomitant]
     Dates: start: 20080614

REACTIONS (2)
  - PNEUMONIA [None]
  - SEPSIS [None]
